FAERS Safety Report 15151560 (Version 3)
Quarter: 2018Q3

REPORT INFORMATION
  Report Type: Report from Study
  Country: US (occurrence: US)
  Receive Date: 20180716
  Receipt Date: 20180914
  Transmission Date: 20181010
  Serious: Yes (Hospitalization)
  Sender: FDA-Public Use
  Company Number: US-SAKK-2018SA182012AA

PATIENT
  Age: 51 Year
  Sex: Female

DRUGS (2)
  1. ALEMTUZUMAB [Suspect]
     Active Substance: ALEMTUZUMAB
     Dosage: 12 MG, QD
     Route: 041
     Dates: start: 20180806, end: 20180808
  2. ALEMTUZUMAB [Suspect]
     Active Substance: ALEMTUZUMAB
     Indication: MULTIPLE SCLEROSIS
     Dosage: 12 MG, QD
     Route: 041
     Dates: start: 20170731, end: 20170804

REACTIONS (9)
  - White blood cell count decreased [Recovered/Resolved]
  - Blood count abnormal [Recovered/Resolved]
  - Red blood cell count decreased [Recovered/Resolved]
  - Lymphocyte count abnormal [Not Recovered/Not Resolved]
  - White blood cell count abnormal [Unknown]
  - Platelet count abnormal [Unknown]
  - Pyrexia [Recovered/Resolved]
  - Haemoglobin abnormal [Unknown]
  - Platelet count decreased [Recovered/Resolved]

NARRATIVE: CASE EVENT DATE: 201709
